FAERS Safety Report 11383519 (Version 10)
Quarter: 2016Q4

REPORT INFORMATION
  Report Type: Report from Study
  Country: GB (occurrence: GB)
  Receive Date: 20150814
  Receipt Date: 20161221
  Transmission Date: 20170206
  Serious: Yes (Hospitalization)
  Sender: FDA-Public Use
  Company Number: GB-ROCHE-1620231

PATIENT
  Age: 48 Year
  Sex: Female
  Weight: 61.6 kg

DRUGS (27)
  1. DEXAMETHASONE. [Concomitant]
     Active Substance: DEXAMETHASONE
     Route: 048
     Dates: start: 20150507
  2. CYCLOPHOSPHAMIDE. [Suspect]
     Active Substance: CYCLOPHOSPHAMIDE
     Indication: HER-2 POSITIVE BREAST CANCER
     Route: 042
     Dates: start: 20150506
  3. FILGRASTIM [Concomitant]
     Active Substance: FILGRASTIM
     Route: 058
     Dates: start: 20150510
  4. BETAMETHASONE VALERATE. [Concomitant]
     Active Substance: BETAMETHASONE VALERATE
     Indication: PRURITUS
     Route: 061
     Dates: start: 20150605
  5. DERMOL 500 LOTION [Concomitant]
     Indication: DRY SKIN
     Dosage: DOSE 1 OTHER
     Route: 061
     Dates: start: 20150605
  6. ONDASETRON [Concomitant]
     Active Substance: ONDANSETRON
     Route: 048
     Dates: start: 20150506
  7. DEXAMETHASONE. [Concomitant]
     Active Substance: DEXAMETHASONE
     Route: 042
     Dates: start: 20150506
  8. EPIRUBICIN [Suspect]
     Active Substance: EPIRUBICIN
     Indication: HER-2 POSITIVE BREAST CANCER
     Route: 042
     Dates: start: 20150506
  9. 5-FLUOROURACIL [Suspect]
     Active Substance: FLUOROURACIL
     Indication: HER-2 POSITIVE BREAST CANCER
     Route: 042
     Dates: start: 20150506
  10. DOMPERIDONE [Concomitant]
     Active Substance: DOMPERIDONE
     Route: 048
     Dates: start: 20150507
  11. PARACETAMOL [Concomitant]
     Active Substance: ACETAMINOPHEN
     Indication: BONE PAIN
     Route: 048
     Dates: start: 20150515
  12. ASILAX [Concomitant]
     Dosage: ANTI-HISTAMINE (SIDE EFFECTS OF VANCYCLOVIR
     Route: 048
     Dates: start: 20141102
  13. ONDASETRON [Concomitant]
     Active Substance: ONDANSETRON
     Route: 048
     Dates: start: 20150506
  14. VENTOLIN [Concomitant]
     Active Substance: ALBUTEROL SULFATE
     Indication: ASTHMA
     Dosage: 2.5 IH INHALATION
     Route: 065
     Dates: start: 199108
  15. FEXOFENADINE [Concomitant]
     Active Substance: FEXOFENADINE\FEXOFENADINE HYDROCHLORIDE
     Dosage: ANTI-HISTAMINE (SIDE EFFECTS OF VANCYCLOVIR)
     Route: 048
     Dates: start: 20141102
  16. PERTUZUMAB [Suspect]
     Active Substance: PERTUZUMAB
     Indication: HER-2 POSITIVE BREAST CANCER
     Dosage: LOADING DOSE?MOST RECENT DOSE OF PERTUZUMAB 840 MG  PRIOR TO SAE NEUTROPENIC SEPSIS ON 30/JUL/2015,
     Route: 042
     Dates: start: 20150730, end: 20150730
  17. DOCETAXEL. [Suspect]
     Active Substance: DOCETAXEL
     Dosage: REDUCED DOSE
     Route: 042
  18. APREPITANT. [Concomitant]
     Active Substance: APREPITANT
     Route: 048
     Dates: start: 20150529
  19. VALACYCLOVIR [Concomitant]
     Active Substance: VALACYCLOVIR HYDROCHLORIDE
     Route: 048
  20. CODEINE [Concomitant]
     Active Substance: CODEINE
     Indication: ABDOMINAL PAIN
     Route: 048
     Dates: start: 20150506
  21. LANSOPRAZOLE. [Concomitant]
     Active Substance: LANSOPRAZOLE
     Indication: DYSPEPSIA
     Route: 048
     Dates: start: 20150605
  22. APREPITANT. [Concomitant]
     Active Substance: APREPITANT
     Route: 048
     Dates: start: 20150527
  23. ZOPICLONE [Concomitant]
     Active Substance: ZOPICLONE
     Indication: INSOMNIA
     Route: 048
  24. TRASTUZUMAB [Suspect]
     Active Substance: TRASTUZUMAB
     Indication: HER-2 POSITIVE BREAST CANCER
     Dosage: LOADING DOSE?MOST RECENT DOSE OF TRASTUZUMAB 480 MG PRIORT TO SAE NEUTROPENIC SEPSIS ON 30/JUL/2015;
     Route: 042
     Dates: start: 20150730, end: 20150730
  25. DOCETAXEL. [Suspect]
     Active Substance: DOCETAXEL
     Indication: HER-2 POSITIVE BREAST CANCER
     Route: 042
     Dates: start: 20150730, end: 20150730
  26. CO-DYDRAMOL [Concomitant]
     Active Substance: ACETAMINOPHEN\DIHYDROCODEINE
     Indication: ABDOMINAL PAIN
     Route: 048
     Dates: start: 20150506
  27. MELATONIN [Concomitant]
     Active Substance: MELATONIN
     Dosage: GENERAL HEALTH
     Route: 048
     Dates: start: 201606

REACTIONS (1)
  - Neutropenic sepsis [Recovered/Resolved]

NARRATIVE: CASE EVENT DATE: 20150807
